FAERS Safety Report 9395868 (Version 1)
Quarter: 2013Q3

REPORT INFORMATION
  Report Type: Spontaneous
  Country: US (occurrence: US)
  Receive Date: 20130711
  Receipt Date: 20130711
  Transmission Date: 20140515
  Serious: Yes (Other)
  Sender: FDA-Public Use
  Company Number: US-GLAXOSMITHKLINE-A1032299A

PATIENT
  Sex: 0

DRUGS (3)
  1. LAMOTRIGINE [Suspect]
     Indication: CONVULSION
     Route: 065
  2. KEPPRA [Suspect]
     Indication: CONVULSION
     Route: 065
  3. DILANTIN [Suspect]
     Indication: PRODUCT USED FOR UNKNOWN INDICATION
     Route: 065

REACTIONS (9)
  - Convulsion [Unknown]
  - Musculoskeletal stiffness [Unknown]
  - Speech disorder [Unknown]
  - Myofascial pain syndrome [Unknown]
  - Stress [Unknown]
  - Overwork [Unknown]
  - Insomnia [Unknown]
  - Posture abnormal [Unknown]
  - Dyspnoea [Unknown]
